FAERS Safety Report 7089360-3 (Version None)
Quarter: 2010Q4

REPORT INFORMATION
  Report Type: 
  Country: None (occurrence: None)
  Receive Date: 20101108
  Receipt Date: 20101102
  Transmission Date: 20110411
  Serious: Yes (Other)
  Sender: FDA-Public Use
  Company Number: US-CEPHALON-2010005744

PATIENT
  Sex: Male

DRUGS (1)
  1. AMRIX [Suspect]
     Route: 048

REACTIONS (1)
  - OEDEMA PERIPHERAL [None]
